FAERS Safety Report 5816081-4 (Version None)
Quarter: 2008Q4

REPORT INFORMATION
  Report Type: 
  Country: None (occurrence: None)
  Receive Date: 20080716
  Receipt Date: 20070802
  Transmission Date: 20090506
  Serious: Yes (Other)
  Sender: FDA-Public Use
  Company Number: 2007US001820

PATIENT
  Age: 85 Year
  Sex: Male
  Weight: 65.3 kg

DRUGS (2)
  1. ADENOSCAN [Suspect]
     Indication: SCAN MYOCARDIAL PERFUSION
     Dosage: 29.1 MG, UID/QD, IV DRIP
     Route: 041
     Dates: start: 20070731, end: 20070731
  2. CARDIOLITE [Suspect]

REACTIONS (1)
  - ATRIOVENTRICULAR BLOCK COMPLETE [None]
